FAERS Safety Report 8186172-4 (Version None)
Quarter: 2012Q1

REPORT INFORMATION
  Report Type: 
  Country: None (occurrence: None)
  Receive Date: 20120306
  Receipt Date: 20120229
  Transmission Date: 20120608
  Serious: No
  Sender: FDA-Public Use
  Company Number: CA-PFIZER INC-2012055693

PATIENT
  Sex: Female
  Weight: 63 kg

DRUGS (3)
  1. LOVAZA [Concomitant]
     Dosage: UNK
  2. LIPITOR [Suspect]
     Indication: MYOCARDIAL INFARCTION
     Dosage: 40 MG, 1X/DAY
     Route: 048
     Dates: start: 20111206
  3. ACETYLSALICYLIC ACID [Concomitant]
     Dosage: 81 MG, 1X/DAY

REACTIONS (7)
  - PAIN IN EXTREMITY [None]
  - DYSGEUSIA [None]
  - DRY MOUTH [None]
  - LIVER DISORDER [None]
  - FATIGUE [None]
  - EYE PAIN [None]
  - MALAISE [None]
